FAERS Safety Report 6348859-5 (Version None)
Quarter: 2009Q3

REPORT INFORMATION
  Report Type: 
  Country: None (occurrence: None)
  Receive Date: 20090911
  Receipt Date: 20090907
  Transmission Date: 20100115
  Serious: Yes (Hospitalization, Other)
  Sender: FDA-Public Use
  Company Number: US-TEVA-208569USA

PATIENT
  Age: 45 Year
  Sex: Male

DRUGS (1)
  1. CLARITHROMYCIN EXTENDED RELEASE  TABLETS 500 MG [Suspect]
     Indication: ACUTE SINUSITIS
     Route: 048

REACTIONS (1)
  - RHABDOMYOLYSIS [None]
